FAERS Safety Report 13649897 (Version 1)
Quarter: 2017Q2

REPORT INFORMATION
  Report Type: Spontaneous
  Country: US (occurrence: US)
  Receive Date: 20170614
  Receipt Date: 20170614
  Transmission Date: 20170830
  Serious: No
  Sender: FDA-Public Use
  Company Number: US-BIOGEN-2017BI00414049

PATIENT
  Sex: Female

DRUGS (1)
  1. AVONEX [Suspect]
     Active Substance: INTERFERON BETA-1A
     Indication: MULTIPLE SCLEROSIS
     Route: 030
     Dates: start: 20080620

REACTIONS (5)
  - Mood swings [Unknown]
  - Malaise [Recovered/Resolved]
  - Nervousness [Recovered/Resolved]
  - Contusion [Unknown]
  - Pyrexia [Unknown]
